FAERS Safety Report 22772891 (Version 2)
Quarter: 2024Q4

REPORT INFORMATION
  Report Type: Spontaneous
  Country: IN (occurrence: IN)
  Receive Date: 20230801
  Receipt Date: 20241021
  Transmission Date: 20250115
  Serious: Yes (Hospitalization)
  Sender: PFIZER
  Company Number: IN-PFIZER INC-202200350901

PATIENT
  Age: 54 Year
  Sex: Male

DRUGS (1)
  1. CRIZOTINIB [Suspect]
     Active Substance: CRIZOTINIB
     Dosage: 250 MG, BD
     Route: 048

REACTIONS (5)
  - Viral infection [Unknown]
  - Neoplasm progression [Unknown]
  - Mental disorder [Unknown]
  - Intentional product misuse [Unknown]
  - Blood pressure increased [Unknown]
